FAERS Safety Report 18142439 (Version 1)
Quarter: 2020Q3

REPORT INFORMATION
  Report Type: Report from Study
  Country: MX (occurrence: MX)
  Receive Date: 20200812
  Receipt Date: 20200812
  Transmission Date: 20201103
  Serious: Yes (Other)
  Sender: FDA-Public Use
  Company Number: PHHY2017MX167638

PATIENT
  Age: 81 Year
  Sex: Male
  Weight: 66 kg

DRUGS (3)
  1. ENTRESTO [Suspect]
     Active Substance: SACUBITRIL\VALSARTAN
     Indication: CARDIAC DISORDER
     Dosage: 2 DF, QD
     Route: 065
  2. ENTRESTO [Suspect]
     Active Substance: SACUBITRIL\VALSARTAN
     Dosage: 0.5 DF (100 MG), QD
     Route: 048
     Dates: start: 201707
  3. ENTRESTO [Suspect]
     Active Substance: SACUBITRIL\VALSARTAN
     Dosage: 50 MG
     Route: 065

REACTIONS (11)
  - Cough [Unknown]
  - Wrong technique in product usage process [Unknown]
  - Product prescribing error [Unknown]
  - Cerebrovascular accident [Recovering/Resolving]
  - Inappropriate schedule of product administration [Recovered/Resolved]
  - Speech disorder [Unknown]
  - Terminal state [Recovering/Resolving]
  - Cardiac arrest [Unknown]
  - Product use in unapproved indication [Unknown]
  - Infarction [Recovering/Resolving]
  - Tachycardia [Recovering/Resolving]

NARRATIVE: CASE EVENT DATE: 201707
